FAERS Safety Report 5688213-2 (Version None)
Quarter: 2008Q1

REPORT INFORMATION
  Report Type: 
  Country: None (occurrence: None)
  Receive Date: 20080327
  Receipt Date: 20080312
  Transmission Date: 20080703
  Serious: No
  Sender: FDA-Public Use
  Company Number: 8030864

PATIENT

DRUGS (2)
  1. METHYLPHENIDATE HCL [Suspect]
  2. MEDIKINET [Concomitant]

REACTIONS (1)
  - TIC [None]
